FAERS Safety Report 17818421 (Version 1)
Quarter: 2020Q2

REPORT INFORMATION
  Report Type: Spontaneous
  Country: CN (occurrence: CN)
  Receive Date: 20200523
  Receipt Date: 20200523
  Transmission Date: 20200714
  Serious: Yes (Other)
  Sender: FDA-Public Use
  Company Number: CN-ROCHE-2603313

PATIENT
  Age: 47 Year
  Sex: Female

DRUGS (7)
  1. PACLITAXEL LIPOSOME [Concomitant]
     Active Substance: PACLITAXEL
     Indication: BREAST CANCER
     Dosage: 2 CYCLES
     Route: 065
     Dates: start: 20180306, end: 20180403
  2. HERCEPTIN [Suspect]
     Active Substance: TRASTUZUMAB
     Dosage: 2 CYCLES
     Route: 065
     Dates: start: 20180306, end: 20180403
  3. HERCEPTIN [Suspect]
     Active Substance: TRASTUZUMAB
     Dosage: 12 CYCLES
     Route: 065
     Dates: start: 20180529, end: 20190406
  4. CAPECITABINE. [Suspect]
     Active Substance: CAPECITABINE
     Indication: BREAST CANCER
     Dosage: 2 CYCLES
     Route: 048
     Dates: start: 20180306, end: 20180403
  5. PERJETA [Suspect]
     Active Substance: PERTUZUMAB
     Indication: BREAST CANCER
     Dosage: 12 CYCLES
     Route: 065
     Dates: start: 20180529, end: 20190406
  6. HERCEPTIN [Suspect]
     Active Substance: TRASTUZUMAB
     Indication: BREAST CANCER
     Route: 065
     Dates: start: 20180201
  7. PACLITAXEL LIPOSOME [Concomitant]
     Active Substance: PACLITAXEL
     Dosage: 12 CYCLES
     Route: 065
     Dates: start: 20180529, end: 20190406

REACTIONS (5)
  - Tricuspid valve incompetence [Unknown]
  - Left ventricular dysfunction [Unknown]
  - Diastolic dysfunction [Unknown]
  - Mitral valve incompetence [Unknown]
  - Pulmonary valve incompetence [Unknown]

NARRATIVE: CASE EVENT DATE: 20180529
